FAERS Safety Report 7761902-1 (Version None)
Quarter: 2011Q3

REPORT INFORMATION
  Report Type: 
  Country: None (occurrence: None)
  Receive Date: 20110920
  Receipt Date: 20110912
  Transmission Date: 20111222
  Serious: Yes (Life-Threatening, Hospitalization)
  Sender: FDA-Public Use
  Company Number: FR-ELI_LILLY_AND_COMPANY-FR201109003164

PATIENT
  Age: 54 Year
  Sex: Female

DRUGS (2)
  1. CISPLATIN [Concomitant]
     Indication: NON-SMALL CELL LUNG CANCER
  2. ALIMTA [Suspect]
     Indication: NON-SMALL CELL LUNG CANCER

REACTIONS (4)
  - THROMBOTIC MICROANGIOPATHY [None]
  - CEREBROVASCULAR ACCIDENT [None]
  - PROTHROMBIN TIME SHORTENED [None]
  - COAGULOPATHY [None]
